FAERS Safety Report 6941457-1 (Version None)
Quarter: 2010Q3

REPORT INFORMATION
  Report Type: 
  Country: None (occurrence: None)
  Receive Date: 20100825
  Receipt Date: 20100819
  Transmission Date: 20110219
  Serious: Yes (Other)
  Sender: FDA-Public Use
  Company Number: IT-ABBOTT-10P-083-0665129-00

PATIENT
  Age: 44 Year
  Sex: Female

DRUGS (5)
  1. DEPAKENE [Suspect]
     Indication: SCHIZOPHRENIA
     Dosage: DAILY DOSE: 3 UNITS
     Route: 048
     Dates: start: 20100701, end: 20100708
  2. DEPAKENE [Concomitant]
     Indication: PRODUCT USED FOR UNKNOWN INDICATION
     Dates: start: 20100101, end: 20100630
  3. DELORAZEPAM [Concomitant]
     Indication: PRODUCT USED FOR UNKNOWN INDICATION
  4. PAROXETINE [Concomitant]
     Indication: PRODUCT USED FOR UNKNOWN INDICATION
  5. ZIPRASIDONE HCL [Concomitant]
     Indication: PRODUCT USED FOR UNKNOWN INDICATION

REACTIONS (2)
  - BRADYPHRENIA [None]
  - DRUG LEVEL INCREASED [None]
